FAERS Safety Report 20407948 (Version 1)
Quarter: 2022Q1

REPORT INFORMATION
  Report Type: Spontaneous
  Country: HR (occurrence: HR)
  Receive Date: 20220201
  Receipt Date: 20220201
  Transmission Date: 20220424
  Serious: Yes (Death)
  Sender: FDA-Public Use
  Company Number: None

PATIENT
  Age: 67 Year
  Sex: Male
  Weight: 90 kg

DRUGS (4)
  1. VENETOCLAX [Suspect]
     Active Substance: VENETOCLAX
     Indication: Chronic lymphocytic leukaemia
     Route: 048
     Dates: start: 20211207, end: 20220110
  2. METILDIGOXIN [Concomitant]
     Active Substance: METILDIGOXIN
     Indication: Atrial fibrillation
     Route: 048
     Dates: start: 2015
  3. FEBUXOSTAT [Concomitant]
     Active Substance: FEBUXOSTAT
     Indication: Hyperuricaemia
     Route: 048
     Dates: start: 20210616
  4. ELIQUIS [Concomitant]
     Active Substance: APIXABAN
     Indication: Product used for unknown indication
     Route: 048
     Dates: start: 20210727

REACTIONS (6)
  - Jaundice [Fatal]
  - Dyspnoea exertional [Fatal]
  - Chromaturia [Fatal]
  - Pallor [Fatal]
  - Autoimmune haemolytic anaemia [Fatal]
  - Tachycardia [Fatal]

NARRATIVE: CASE EVENT DATE: 20220110
